FAERS Safety Report 10266802 (Version 2)
Quarter: 2014Q2

REPORT INFORMATION
  Report Type: Spontaneous
  Country: US (occurrence: US)
  Receive Date: 20140630
  Receipt Date: 20140630
  Transmission Date: 20141212
  Serious: Yes (Other)
  Sender: FDA-Public Use
  Company Number: US-ROCHE-1407435

PATIENT
  Age: 41 Year
  Sex: Female
  Weight: 47.67 kg

DRUGS (10)
  1. XOLAIR [Suspect]
     Indication: URTICARIA
     Dosage: SINGLE DOSE
     Route: 058
     Dates: start: 20140416, end: 20140416
  2. ZYRTEC [Concomitant]
     Indication: URTICARIA
     Route: 048
     Dates: start: 201401
  3. DOXEPIN [Concomitant]
     Indication: URTICARIA
     Route: 048
     Dates: start: 201401
  4. PREDNISONE [Concomitant]
     Dosage: FOR 3 DAYS
     Route: 065
     Dates: start: 20140520
  5. PREDNISONE [Concomitant]
     Dosage: FOR 3 DAYS
     Route: 065
  6. TRIAMCINOLONE OINTMENT [Concomitant]
     Route: 061
  7. CORTISONE [Concomitant]
     Route: 061
  8. ALLEGRA [Concomitant]
     Route: 065
  9. SINGULAIR [Concomitant]
     Route: 065
  10. NASACORT [Concomitant]

REACTIONS (9)
  - Muscular weakness [Not Recovered/Not Resolved]
  - Asthenia [Not Recovered/Not Resolved]
  - Confusional state [Not Recovered/Not Resolved]
  - Muscle contractions involuntary [Not Recovered/Not Resolved]
  - Influenza like illness [Unknown]
  - Cognitive disorder [Unknown]
  - Weight decreased [Unknown]
  - Anti-thyroid antibody positive [Unknown]
  - Fatigue [Unknown]
